FAERS Safety Report 4575652-6 (Version None)
Quarter: 2005Q1

REPORT INFORMATION
  Report Type: 
  Country: None (occurrence: None)
  Receive Date: 20050209
  Receipt Date: 20050131
  Transmission Date: 20050727
  Serious: Yes (Other)
  Sender: FDA-Public Use
  Company Number: IT-GLAXOSMITHKLINE-B0370272A

PATIENT
  Age: 16 Year
  Sex: Male

DRUGS (2)
  1. AUGMENTIN [Suspect]
     Dosage: 1G THREE TIMES PER DAY
     Route: 048
     Dates: start: 20050110, end: 20050117
  2. ACETAMINOPHEN [Concomitant]
     Route: 065
     Dates: start: 20050114, end: 20050114

REACTIONS (1)
  - PSORIASIS [None]
